FAERS Safety Report 23736790 (Version 1)
Quarter: 2024Q2

REPORT INFORMATION
  Report Type: Spontaneous
  Country: GB (occurrence: GB)
  Receive Date: 20240412
  Receipt Date: 20240412
  Transmission Date: 20240716
  Serious: Yes (Other)
  Sender: FDA-Public Use
  Company Number: None

PATIENT
  Age: 29 Year
  Sex: Male

DRUGS (32)
  1. TOPAMAX [Suspect]
     Active Substance: TOPIRAMATE
     Indication: Product used for unknown indication
     Dosage: DOSE DESC: UNK; ;
     Route: 050
  2. TOPAMAX [Suspect]
     Active Substance: TOPIRAMATE
     Dosage: DOSE DESC: UNK; ;
     Route: 050
  3. ACETAMINOPHEN [Suspect]
     Active Substance: ACETAMINOPHEN
     Indication: Product used for unknown indication
     Dosage: DOSE DESC: UNK; ORAL LIQUID; ;
     Route: 050
  4. IBUPROFEN [Suspect]
     Active Substance: IBUPROFEN
     Indication: Product used for unknown indication
     Dosage: DOSE DESC: UNK; ;
     Route: 050
  5. VALPROATE [Suspect]
     Active Substance: VALPROIC ACID
     Indication: Product used for unknown indication
     Route: 050
  6. VALPROATE [Suspect]
     Active Substance: VALPROIC ACID
     Indication: Product used for unknown indication
     Route: 050
  7. PYRIDOXINE HYDROCHLORIDE [Suspect]
     Active Substance: PYRIDOXINE HYDROCHLORIDE
     Indication: Product used for unknown indication
     Dosage: DOSE DESC: UNK; ;
     Route: 050
  8. TRAZODONE HYDROCHLORIDE [Suspect]
     Active Substance: TRAZODONE HYDROCHLORIDE
     Indication: Product used for unknown indication
     Dosage: DOSE DESC: UNK, QD;
     Route: 050
  9. DOSULEPIN HYDROCHLORIDE [Suspect]
     Active Substance: DOTHIEPIN HYDROCHLORIDE
     Indication: Product used for unknown indication
     Dosage: DOSE DESC: UNK, ORAL LIQUID; ;
     Route: 050
  10. VITAMIN B COMPLEX [Suspect]
     Active Substance: CYANOCOBALAMIN\DEXPANTHENOL\NIACINAMIDE\PYRIDOXINE HYDROCHLORIDE\RIBOFLAVIN 5^-PHOSPHATE SODIUM\THIA
     Indication: Product used for unknown indication
     Dosage: DOSE DESC: UNK; ;
     Route: 050
  11. THIAMINE HYDROCHLORIDE [Suspect]
     Active Substance: THIAMINE HYDROCHLORIDE
     Indication: Product used for unknown indication
     Dosage: DOSE DESC: UNK; ;
     Route: 050
  12. TOPIRAMATE [Suspect]
     Active Substance: TOPIRAMATE
     Indication: Product used for unknown indication
     Dosage: DOSE DESC: UNK; ;
     Route: 050
  13. DOTHIEPIN HYDROCHLORIDE [Suspect]
     Active Substance: DOTHIEPIN HYDROCHLORIDE
     Indication: Product used for unknown indication
     Route: 050
  14. IBUPROFEN [Suspect]
     Active Substance: IBUPROFEN
     Indication: Product used for unknown indication
     Dosage: DOSE DESC: UNK; ;
     Route: 050
  15. IBUPROFEN [Suspect]
     Active Substance: IBUPROFEN
     Indication: Product used for unknown indication
     Dosage: ENDOTRACHEOPULMONARY INSTILLATION, POWDER AND SOLVENT FOR SOLUTION; ;
     Route: 050
  16. SERTRALINE [Suspect]
     Active Substance: SERTRALINE HYDROCHLORIDE
     Indication: Product used for unknown indication
     Route: 050
  17. PREGABALIN [Suspect]
     Active Substance: PREGABALIN
     Indication: Product used for unknown indication
     Dosage: UNK; ;
     Route: 050
  18. AMITRIPTYLINE HYDROCHLORIDE [Suspect]
     Active Substance: AMITRIPTYLINE HYDROCHLORIDE
     Indication: Product used for unknown indication
     Dosage: UNK, ORAL LIQUID; CYCLICAL?					;
     Route: 050
     Dates: start: 2017, end: 2018
  19. NIACINAMIDE\RIBOFLAVIN\THIAMINE HYDROCHLORIDE [Suspect]
     Active Substance: NIACINAMIDE\RIBOFLAVIN\THIAMINE HYDROCHLORIDE
     Indication: Product used for unknown indication
     Route: 050
  20. TRAZODONE HYDROCHLORIDE [Suspect]
     Active Substance: TRAZODONE HYDROCHLORIDE
     Indication: Product used for unknown indication
     Dosage: DOSE DESC: UNK; ;
     Route: 050
  21. SERTRALINE HYDROCHLORIDE [Suspect]
     Active Substance: SERTRALINE HYDROCHLORIDE
     Indication: Product used for unknown indication
     Dosage: DOSE DESC: UNK; ;
     Route: 050
  22. PROTHIADEN [Suspect]
     Active Substance: DOTHIEPIN HYDROCHLORIDE
     Indication: Product used for unknown indication
     Dosage: DOSE DESC: UNK; ;
     Route: 050
  23. PROTHIADEN [Suspect]
     Active Substance: DOTHIEPIN HYDROCHLORIDE
     Indication: Product used for unknown indication
     Dosage: UNK; ;
     Route: 050
  24. PROTHIADEN [Suspect]
     Active Substance: DOTHIEPIN HYDROCHLORIDE
     Indication: Product used for unknown indication
     Dosage: DOSE DESC: ENDOTRACHEOPULMONARY INSTILLATION, POWDER AND SOLVENT FOR SOLUTION; ;
     Route: 050
  25. PROTHIADEN [Suspect]
     Active Substance: DOTHIEPIN HYDROCHLORIDE
     Indication: Product used for unknown indication
     Route: 050
  26. PYRIDOXINE [Suspect]
     Active Substance: PYRIDOXINE
     Indication: Product used for unknown indication
     Route: 050
  27. DOSULEPIN HYDROCHLORIDE [Suspect]
     Active Substance: DOTHIEPIN HYDROCHLORIDE
     Indication: Product used for unknown indication
     Route: 050
  28. BOTULINUM TOXIN TYPE A [Suspect]
     Active Substance: BOTULINUM TOXIN TYPE A
     Indication: Product used for unknown indication
     Dosage: 1 DF, QCY; CYCLICAL; AS NECESSARY
     Route: 050
     Dates: start: 2017, end: 2017
  29. BOTULINUM TOXIN TYPE A [Suspect]
     Active Substance: BOTULINUM TOXIN TYPE A
     Indication: Product used for unknown indication
     Dosage: SINGLE; CYCLICAL ;; AS NECESSARY
     Route: 050
     Dates: start: 2018, end: 2018
  30. BOTULINUM TOXIN TYPE A [Suspect]
     Active Substance: BOTULINUM TOXIN TYPE A
     Indication: Product used for unknown indication
     Dosage: UNK UNK, SINGLE; CYCLICAL ;; AS NECESSARY
     Route: 050
     Dates: start: 2017, end: 2018
  31. CYANOCOBALAMIN [Suspect]
     Active Substance: CYANOCOBALAMIN
     Indication: Product used for unknown indication
     Route: 050
  32. DICLOFENAC SODIUM [Suspect]
     Active Substance: DICLOFENAC\DICLOFENAC SODIUM
     Indication: Product used for unknown indication
     Route: 050

REACTIONS (6)
  - Head discomfort [Unknown]
  - Back pain [Unknown]
  - Pain [Unknown]
  - Migraine [Unknown]
  - Neck pain [Unknown]
  - Headache [Unknown]
